FAERS Safety Report 14558812 (Version 1)
Quarter: 2018Q1

REPORT INFORMATION
  Report Type: Spontaneous
  Country: NO (occurrence: NO)
  Receive Date: 20180221
  Receipt Date: 20180221
  Transmission Date: 20180509
  Serious: Yes (Life-Threatening)
  Sender: FDA-Public Use
  Company Number: PHHY2018NO027853

PATIENT
  Age: 34 Year
  Sex: Male

DRUGS (1)
  1. DOXYCYCLINE. [Suspect]
     Active Substance: DOXYCYCLINE
     Indication: RESPIRATORY TRACT INFECTION
     Dosage: 500 MG, QD
     Route: 048
     Dates: start: 20171227, end: 20171228

REACTIONS (5)
  - Lip oedema [Recovering/Resolving]
  - Rash generalised [Recovering/Resolving]
  - Angioedema [Recovering/Resolving]
  - Pruritus [Recovering/Resolving]
  - Hypersensitivity [Recovering/Resolving]

NARRATIVE: CASE EVENT DATE: 20171228
